FAERS Safety Report 26044074 (Version 2)
Quarter: 2025Q4

REPORT INFORMATION
  Report Type: Spontaneous
  Country: EU (occurrence: EU)
  Receive Date: 20251114
  Receipt Date: 20251125
  Transmission Date: 20260117
  Serious: Yes (Other)
  Sender: BIOVITRUM
  Company Number: EU-BIOVITRUM-2025-ES-012694

PATIENT
  Age: 8 Year
  Sex: Female

DRUGS (6)
  1. KINERET [Suspect]
     Active Substance: ANAKINRA
     Indication: Haemophagocytic lymphohistiocytosis
     Dosage: IN PICU, EVERY 8 HOURS
     Route: 042
     Dates: end: 2025
  2. KINERET [Suspect]
     Active Substance: ANAKINRA
     Route: 058
     Dates: end: 2025
  3. KINERET [Suspect]
     Active Substance: ANAKINRA
     Dosage: IN THE CONTEXT OF HEPATITIS
     Route: 058
     Dates: start: 20240814, end: 2025
  4. KINERET [Suspect]
     Active Substance: ANAKINRA
     Route: 058
     Dates: start: 20240814, end: 2025
  5. KINERET [Suspect]
     Active Substance: ANAKINRA
     Dosage: EVERY 24 HOURS (REDUCED FROM 40 MG TO 20 MG)
     Route: 058
     Dates: start: 20240814, end: 2025
  6. PREDNISONE [Concomitant]
     Active Substance: PREDNISONE
     Indication: Product used for unknown indication

REACTIONS (2)
  - Chronic hepatitis [Not Recovered/Not Resolved]
  - Off label use [Recovered/Resolved]

NARRATIVE: CASE EVENT DATE: 20250701
